FAERS Safety Report 14339259 (Version 1)
Quarter: 2017Q4

REPORT INFORMATION
  Report Type: Spontaneous
  Country: FR (occurrence: FR)
  Receive Date: 20171230
  Receipt Date: 20171230
  Transmission Date: 20180321
  Serious: Yes (Hospitalization)
  Sender: FDA-Public Use
  Company Number: FR-AUROBINDO-AUR-APL-2017-47775

PATIENT
  Age: 53 Year
  Sex: Male

DRUGS (2)
  1. LINEZOLID 600 MG [Suspect]
     Active Substance: LINEZOLID
     Indication: SEPSIS
     Route: 048
     Dates: start: 20171017, end: 20171025
  2. PRAVASTATIN. [Suspect]
     Active Substance: PRAVASTATIN
     Indication: DYSLIPIDAEMIA
     Route: 048
     Dates: end: 20171025

REACTIONS (1)
  - Rhabdomyolysis [Recovered/Resolved]

NARRATIVE: CASE EVENT DATE: 20171023
